FAERS Safety Report 4666603-4 (Version None)
Quarter: 2005Q2

REPORT INFORMATION
  Report Type: 
  Country: None (occurrence: None)
  Receive Date: 20050518
  Receipt Date: 20050509
  Transmission Date: 20051028
  Serious: Yes (Hospitalization)
  Sender: FDA-Public Use
  Company Number: 0104-2252

PATIENT

DRUGS (1)
  1. ADVICOR [Suspect]
     Dates: start: 20040801

REACTIONS (2)
  - HEADACHE [None]
  - SYNCOPE [None]
